FAERS Safety Report 6801441-5 (Version None)
Quarter: 2010Q2

REPORT INFORMATION
  Report Type: 
  Country: None (occurrence: None)
  Receive Date: 20100629
  Receipt Date: 20100621
  Transmission Date: 20101027
  Serious: Yes (Hospitalization)
  Sender: FDA-Public Use
  Company Number: US-ROCHE-711176

PATIENT
  Sex: Female
  Weight: 21.8 kg

DRUGS (1)
  1. CAPECITABINE [Suspect]
     Indication: BRAIN STEM GLIOMA
     Dosage: DATE OF LAST DOSE PRIOR TO SAE 07 JUNE 2010
     Route: 048
     Dates: start: 20100406

REACTIONS (1)
  - HAEMORRHAGE INTRACRANIAL [None]
